FAERS Safety Report 8421597-0 (Version None)
Quarter: 2012Q2

REPORT INFORMATION
  Report Type: 
  Country: None (occurrence: None)
  Receive Date: 20120605
  Receipt Date: 20120605
  Transmission Date: 20120825
  Serious: Yes (Other)
  Sender: FDA-Public Use
  Company Number: None

PATIENT
  Age: 54 Year
  Sex: Female

DRUGS (2)
  1. PREMPRO [Suspect]
  2. PREMPRO [Suspect]
     Indication: HYSTERECTOMY
     Dosage: 1 TABLET DAILY ORALLY  MARCH 6, 2012 TO APR 7  HAVE TAKEN SINCE 2002
     Route: 048

REACTIONS (8)
  - DRUG INEFFECTIVE [None]
  - FATIGUE [None]
  - DEPRESSION [None]
  - MALAISE [None]
  - HOT FLUSH [None]
  - DRY SKIN [None]
  - METABOLIC DISORDER [None]
  - BALANCE DISORDER [None]
